FAERS Safety Report 4674009-7 (Version None)
Quarter: 2005Q2

REPORT INFORMATION
  Report Type: 
  Country: None (occurrence: None)
  Receive Date: 20050525
  Receipt Date: 20050506
  Transmission Date: 20051028
  Serious: Yes (Hospitalization)
  Sender: FDA-Public Use
  Company Number: 213099

PATIENT
  Age: 69 Year
  Sex: Male
  Weight: 61 kg

DRUGS (9)
  1. AVASTIN [Suspect]
     Indication: COLORECTAL CANCER
     Dosage: Q3W,
     Dates: start: 20050204
  2. METOPROLOL TARTRATE [Concomitant]
  3. TEMAZEPAM [Concomitant]
  4. OMNIC (TAMSULOSIN HYDROCHLORIDE) [Concomitant]
  5. LANSOPRAZOLE [Concomitant]
  6. FLAGYL [Concomitant]
  7. CIPROFLOXACIN [Concomitant]
  8. COZAAR [Concomitant]
  9. DETRUSITOL (TOLTERODINE TARTRATE) [Concomitant]

REACTIONS (19)
  - ACTIVATED PARTIAL THROMBOPLASTIN TIME SHORTENED [None]
  - ATRIAL FIBRILLATION [None]
  - BLOOD PRESSURE DECREASED [None]
  - BODY TEMPERATURE INCREASED [None]
  - CANDIDURIA [None]
  - CHEST DISCOMFORT [None]
  - CHILLS [None]
  - CONFUSIONAL STATE [None]
  - DISEASE PROGRESSION [None]
  - DYSPNOEA [None]
  - HYPERGLYCAEMIA [None]
  - PAIN [None]
  - PLATELET COUNT DECREASED [None]
  - PO2 DECREASED [None]
  - POLLAKIURIA [None]
  - PROTEIN TOTAL DECREASED [None]
  - RECTAL DISCHARGE [None]
  - SEPSIS [None]
  - UROSEPSIS [None]
